FAERS Safety Report 4487901-3 (Version None)
Quarter: 2004Q4

REPORT INFORMATION
  Report Type: 
  Country: None (occurrence: None)
  Receive Date: 20041025
  Receipt Date: 20041011
  Transmission Date: 20050328
  Serious: Yes (Hospitalization)
  Sender: FDA-Public Use
  Company Number: SUSI-2004-00657

PATIENT
  Age: 88 Year
  Sex: Female

DRUGS (6)
  1. PROAMATINE [Suspect]
     Indication: HYPOTENSION
     Dosage: SEE IMAGE
     Dates: start: 20030201, end: 20040201
  2. PROAMATINE [Suspect]
     Indication: HYPOTENSION
     Dosage: SEE IMAGE
     Dates: start: 20040201
  3. SIMVASTATIN [Concomitant]
  4. SYNTHROID [Concomitant]
  5. CELEBREX [Concomitant]
  6. CHLORDIAZEPOXIDE HYDROCHLORIDE (CHLORDIAZEPOXIDE HYDROCHLORIDE) [Concomitant]

REACTIONS (5)
  - ASTHENIA [None]
  - DRUG EFFECT INCREASED [None]
  - MOBILITY DECREASED [None]
  - NAUSEA [None]
  - WEIGHT DECREASED [None]
